FAERS Safety Report 5921131-0 (Version None)
Quarter: 2008Q4

REPORT INFORMATION
  Report Type: 
  Country: None (occurrence: None)
  Receive Date: 20081016
  Receipt Date: 20081009
  Transmission Date: 20090506
  Serious: Yes (Hospitalization)
  Sender: FDA-Public Use
  Company Number: FR-GENENTECH-257936

PATIENT
  Sex: Female
  Weight: 58 kg

DRUGS (6)
  1. RITUXIMAB [Suspect]
     Indication: B-CELL LYMPHOMA
     Dosage: 600 MG, Q3W
     Route: 042
     Dates: start: 20060627
  2. CYCLOPHOSPHAMIDE [Suspect]
     Indication: B-CELL LYMPHOMA
     Dosage: 1200 MG, Q3W
     Route: 042
     Dates: start: 20060627
  3. DOXORUBICIN HCL [Suspect]
     Indication: B-CELL LYMPHOMA
     Dosage: 20 MG, Q3W
     Route: 042
     Dates: start: 20060627
  4. VINCRISTINE [Suspect]
     Indication: B-CELL LYMPHOMA
     Dosage: 2 MG, QDX5D/21DC
     Route: 042
     Dates: start: 20060627
  5. PREDNISONE TAB [Suspect]
     Indication: B-CELL LYMPHOMA
     Dosage: 50 MG, Q3W
     Route: 042
     Dates: start: 20060627
  6. PREDNISONE TAB [Suspect]
     Dosage: 1.4 MG/M2, Q3W
     Route: 048
     Dates: start: 20060627

REACTIONS (1)
  - COLITIS [None]
